FAERS Safety Report 8435157-9 (Version None)
Quarter: 2012Q2

REPORT INFORMATION
  Report Type: 
  Country: None (occurrence: None)
  Receive Date: 20120614
  Receipt Date: 20120605
  Transmission Date: 20120825
  Serious: Yes (Other)
  Sender: FDA-Public Use
  Company Number: US-BAYER-2012-056371

PATIENT
  Age: 22 Year
  Sex: Female

DRUGS (5)
  1. YAZ [Suspect]
     Dosage: UNK
     Dates: start: 20060606, end: 20070607
  2. YASMIN [Suspect]
     Dosage: UNK
     Dates: start: 20041207, end: 20050401
  3. YASMIN [Suspect]
     Dosage: UNK
     Dates: start: 20090729, end: 20100823
  4. DROSPIRENONE AND ETHINYL ESTRADIOL [Suspect]
     Dosage: UNK
     Dates: start: 20080724, end: 20090714
  5. YASMIN [Suspect]
     Dosage: UNK
     Dates: start: 20070607, end: 20080724

REACTIONS (1)
  - INTRACRANIAL VENOUS SINUS THROMBOSIS [None]
